FAERS Safety Report 18687344 (Version 1)
Quarter: 2020Q4

REPORT INFORMATION
  Report Type: Spontaneous
  Country: DE (occurrence: DE)
  Receive Date: 20201231
  Receipt Date: 20201231
  Transmission Date: 20210114
  Serious: Yes (Hospitalization, Other)
  Sender: FDA-Public Use
  Company Number: NVSC2020DE339857

PATIENT
  Sex: Female
  Weight: 50 kg

DRUGS (8)
  1. GARDASIL [Suspect]
     Active Substance: HUMAN PAPILLOMAVIRUS QUADRIVALENT (TYPES 6, 11, 16, AND 18) VACCINE, RECOMBINANT
     Dosage: UNK
     Route: 065
     Dates: start: 2007
  2. SWINGO [Concomitant]
     Active Substance: ETHINYL ESTRADIOL\LEVONORGESTREL
     Indication: PRODUCT USED FOR UNKNOWN INDICATION
     Dosage: UNK
     Route: 065
  3. GARDASIL [Suspect]
     Active Substance: HUMAN PAPILLOMAVIRUS QUADRIVALENT (TYPES 6, 11, 16, AND 18) VACCINE, RECOMBINANT
     Indication: PROPHYLAXIS
     Dosage: UNK
     Route: 065
     Dates: start: 2007
  4. PARACETAMOL [Suspect]
     Active Substance: ACETAMINOPHEN
     Indication: PRODUCT USED FOR UNKNOWN INDICATION
     Dosage: 500 MG 1 TOTAL
     Route: 048
     Dates: start: 201806
  5. HEPATITIS B VACCINE [Suspect]
     Active Substance: HEPATITIS B VIRUS VACCINE
     Indication: PRODUCT USED FOR UNKNOWN INDICATION
     Dosage: UNK
     Route: 065
  6. HEPATITIS A VACCINE NOS [Suspect]
     Active Substance: HEPATITIS A VACCINE, INACTIVATED
     Indication: PRODUCT USED FOR UNKNOWN INDICATION
     Dosage: UNK
     Route: 065
  7. GARDASIL [Suspect]
     Active Substance: HUMAN PAPILLOMAVIRUS QUADRIVALENT (TYPES 6, 11, 16, AND 18) VACCINE, RECOMBINANT
     Dosage: UNK
     Route: 065
     Dates: start: 2007
  8. L-THYROXINE [Concomitant]
     Active Substance: LEVOTHYROXINE
     Indication: HYPOTHYROIDISM
     Dosage: 75 UG
     Route: 065

REACTIONS (23)
  - Iron deficiency anaemia [Unknown]
  - Coagulation time shortened [Unknown]
  - Human papilloma virus test positive [Unknown]
  - Hepatic necrosis [Unknown]
  - Fibroadenoma of breast [Recovered/Resolved]
  - Coagulopathy [Unknown]
  - Abdominal pain [Unknown]
  - Hepatic failure [Recovered/Resolved]
  - Large intestine polyp [Recovered/Resolved]
  - Abdominal pain upper [Unknown]
  - Oesophageal papilloma [Unknown]
  - Weight decreased [Unknown]
  - Nephritis [Unknown]
  - Abdominal pain lower [Unknown]
  - Fatigue [Unknown]
  - Chronic gastritis [Unknown]
  - Splenomegaly [Unknown]
  - Hepatomegaly [Recovered/Resolved]
  - Food intolerance [Recovering/Resolving]
  - Diarrhoea [Unknown]
  - Monocytosis [Unknown]
  - Bacterial disease carrier [Unknown]
  - Hyperthyroidism [Unknown]

NARRATIVE: CASE EVENT DATE: 2018
